FAERS Safety Report 4757399-6 (Version None)
Quarter: 2005Q3

REPORT INFORMATION
  Report Type: 
  Country: None (occurrence: None)
  Receive Date: 20050829
  Receipt Date: 20050822
  Transmission Date: 20060218
  Serious: Yes (Other)
  Sender: FDA-Public Use
  Company Number: 200512360BCC

PATIENT
  Age: 72 Year
  Sex: Male
  Weight: 54.4316 kg

DRUGS (8)
  1. ALEVE [Suspect]
     Dosage: 220 MG, TOTAL DAILY, ORAL
     Route: 048
     Dates: start: 20050604
  2. ALBUTEROL [Concomitant]
  3. FLOVENT [Concomitant]
  4. DIGITOX [Concomitant]
  5. FUROSEMIDE [Concomitant]
  6. POTASSIUM [Concomitant]
  7. ASPIRIN [Concomitant]
  8. QUINAPRIL [Concomitant]

REACTIONS (1)
  - OXYGEN SATURATION DECREASED [None]
